FAERS Safety Report 4450563-5 (Version None)
Quarter: 2004Q3

REPORT INFORMATION
  Report Type: 
  Country: None (occurrence: None)
  Receive Date: 20040914
  Receipt Date: 20040831
  Transmission Date: 20050211
  Serious: Yes (Hospitalization, Other)
  Sender: FDA-Public Use
  Company Number: 2004061920

PATIENT
  Age: 64 Year
  Sex: Female
  Weight: 86.637 kg

DRUGS (4)
  1. LIPITOR [Suspect]
     Indication: BLOOD CHOLESTEROL INCREASED
     Dosage: 10 MG (10 MG, 1 IN 1 D), ORAL
     Route: 048
     Dates: start: 20020212, end: 20040801
  2. METHYLPREDNISOLONE [Suspect]
     Indication: ILL-DEFINED DISORDER
  3. DOXEPIN (DOXEPIN) [Suspect]
     Indication: RASH
     Dates: start: 20040101, end: 20040101
  4. CYPROHEPTADINE HCL [Suspect]
     Indication: ILL-DEFINED DISORDER

REACTIONS (14)
  - BLINDNESS UNILATERAL [None]
  - BLOOD GLUCOSE ABNORMAL [None]
  - BLOOD PRESSURE INCREASED [None]
  - COAGULATION TIME ABNORMAL [None]
  - DRUG HYPERSENSITIVITY [None]
  - FATIGUE [None]
  - MEDICATION ERROR [None]
  - NERVOUSNESS [None]
  - OEDEMA [None]
  - PRURITUS [None]
  - RASH [None]
  - SOMNOLENCE [None]
  - SWELLING [None]
  - WEIGHT INCREASED [None]
